FAERS Safety Report 23394066 (Version 2)
Quarter: 2024Q1

REPORT INFORMATION
  Report Type: Spontaneous
  Country: US (occurrence: US)
  Receive Date: 20240111
  Receipt Date: 20240112
  Transmission Date: 20240410
  Serious: No
  Sender: FDA-Public Use
  Company Number: US-PFIZER INC-202400004128

PATIENT
  Sex: Female

DRUGS (1)
  1. NIFEDIPINE [Suspect]
     Active Substance: NIFEDIPINE
     Indication: Blood pressure abnormal
     Dosage: UNK

REACTIONS (5)
  - Rash papular [Recovering/Resolving]
  - Burning sensation [Unknown]
  - Pruritus [Unknown]
  - Peripheral swelling [Unknown]
  - Pain in extremity [Unknown]
